FAERS Safety Report 6099320-7 (Version None)
Quarter: 2009Q1

REPORT INFORMATION
  Report Type: 
  Country: None (occurrence: None)
  Receive Date: 20090226
  Receipt Date: 20090213
  Transmission Date: 20090719
  Serious: Yes (Other)
  Sender: FDA-Public Use
  Company Number: 231720K09USA

PATIENT
  Age: 41 Year
  Sex: Female
  Weight: 61 kg

DRUGS (8)
  1. REBIF [Suspect]
     Indication: MULTIPLE SCLEROSIS
     Dosage: 44 MCG, 3 IN 1 WEEKS, SUBCUTANEOUS
     Route: 058
     Dates: start: 20081112
  2. LEXAPRO [Concomitant]
  3. MULTI-VITAMINS [Concomitant]
  4. CALCIUM (CALCIUM-DANDOZ /00009901/) [Concomitant]
  5. VITAMIN D [Concomitant]
  6. ZYRTEC (CETIRISINE HYDROCHLORIDE) [Concomitant]
  7. IMODIUM [Concomitant]
  8. ALEVE (CAPLET) [Concomitant]

REACTIONS (4)
  - JAUNDICE [None]
  - LOWER RESPIRATORY TRACT INFECTION [None]
  - LUNG INJURY [None]
  - LUNG NEOPLASM [None]
